FAERS Safety Report 21255409 (Version 2)
Quarter: 2022Q4

REPORT INFORMATION
  Report Type: Report from Study
  Country: TH (occurrence: TH)
  Receive Date: 20220825
  Receipt Date: 20221109
  Transmission Date: 20230112
  Serious: Yes (Disabling)
  Sender: FDA-Public Use
  Company Number: TH-TEVA-2022-TH-2066952

PATIENT
  Age: 3 Year
  Sex: Male

DRUGS (4)
  1. CARBOPLATIN [Suspect]
     Active Substance: CARBOPLATIN
     Indication: Testicular yolk sac tumour stage I
     Dosage: IN A 3-DAY COURSE; RECEIVED 2 COURSES 6 WEEKS APART
     Route: 065
  2. CISPLATIN [Suspect]
     Active Substance: CISPLATIN
     Indication: Testicular yolk sac tumour stage I
     Route: 065
  3. ETOPOSIDE [Concomitant]
     Active Substance: ETOPOSIDE
     Indication: Testicular yolk sac tumour stage I
     Dosage: IN A 3-DAY COURSE; RECEIVED 2 COURSES 6 WEEKS APART
     Route: 065
  4. ETOPOSIDE [Concomitant]
     Active Substance: ETOPOSIDE
     Indication: Bone marrow conditioning regimen
     Dosage: 50 MG/M2 DAILY; RECEIVED FOR 21 DAYS IN A 28-DAYS CYCLE
     Route: 048

REACTIONS (2)
  - Hypoacusis [Not Recovered/Not Resolved]
  - Ototoxicity [Not Recovered/Not Resolved]
